FAERS Safety Report 6774516-7 (Version None)
Quarter: 2010Q2

REPORT INFORMATION
  Report Type: 
  Country: None (occurrence: None)
  Receive Date: 20100617
  Receipt Date: 20100614
  Transmission Date: 20101027
  Serious: Yes (Death, Hospitalization)
  Sender: FDA-Public Use
  Company Number: PHHY2010CA30000

PATIENT
  Sex: Female

DRUGS (1)
  1. CLOZARIL [Suspect]
     Dosage: UNK
     Dates: start: 20090819

REACTIONS (5)
  - ASTHENIA [None]
  - DEATH [None]
  - DYSPHAGIA [None]
  - PNEUMONIA ASPIRATION [None]
  - SMALL INTESTINAL OBSTRUCTION [None]
